FAERS Safety Report 12205844 (Version 1)
Quarter: 2016Q1

REPORT INFORMATION
  Report Type: Spontaneous
  Country: DE (occurrence: DE)
  Receive Date: 20160323
  Receipt Date: 20160323
  Transmission Date: 20160526
  Serious: Yes (Hospitalization)
  Sender: FDA-Public Use
  Company Number: CHPA2016DE003349

PATIENT
  Age: 20 Year
  Sex: Female

DRUGS (1)
  1. OTRIVEN [Suspect]
     Active Substance: XYLOMETAZOLINE HYDROCHLORIDE
     Indication: PRODUCT USED FOR UNKNOWN INDICATION
     Dosage: DAILY
     Route: 045

REACTIONS (3)
  - Syncope [Unknown]
  - Incorrect drug administration duration [Unknown]
  - Tremor [Unknown]
